FAERS Safety Report 13302005 (Version 2)
Quarter: 2017Q1

REPORT INFORMATION
  Report Type: Spontaneous
  Country: JP (occurrence: JP)
  Receive Date: 20170307
  Receipt Date: 20170324
  Transmission Date: 20170428
  Serious: Yes (Death, Hospitalization)
  Sender: FDA-Public Use
  Company Number: JP-PFIZER INC-2017092302

PATIENT
  Age: 71 Year
  Sex: Male
  Weight: 35 kg

DRUGS (2)
  1. CRAVIT [Suspect]
     Active Substance: LEVOFLOXACIN
     Indication: ABDOMINAL ABSCESS
     Dosage: 500 MG, 3X/DAY
     Route: 041
     Dates: start: 20170112
  2. ANAEMETRO 500MG [Suspect]
     Active Substance: METRONIDAZOLE
     Indication: ABDOMINAL ABSCESS
     Dosage: 250 MG, 1X/DAY
     Route: 041
     Dates: start: 20170112

REACTIONS (4)
  - Respiration abnormal [Fatal]
  - Cardiac failure congestive [Fatal]
  - Altered state of consciousness [Fatal]
  - Encephalopathy [Fatal]

NARRATIVE: CASE EVENT DATE: 20170131
